FAERS Safety Report 24537544 (Version 1)
Quarter: 2024Q4

REPORT INFORMATION
  Report Type: Spontaneous
  Country: CN (occurrence: CN)
  Receive Date: 20241023
  Receipt Date: 20241023
  Transmission Date: 20250114
  Serious: Yes (Other)
  Sender: AMGEN
  Company Number: CN-AMGEN-CHNSP2024206327

PATIENT
  Age: 66 Year
  Sex: Female

DRUGS (4)
  1. BLINCYTO [Suspect]
     Active Substance: BLINATUMOMAB
     Indication: Acute lymphocytic leukaemia
     Dosage: 9 MICROGRAM, CONTINUING INFUSION DRIP
     Route: 040
     Dates: start: 20240927, end: 20240928
  2. BLINCYTO [Suspect]
     Active Substance: BLINATUMOMAB
     Dosage: 5 MICROGRAM, CONTINUING 24 HOUR INFUSION, DOSE DECREASED
     Route: 040
     Dates: start: 20240929, end: 202409
  3. BLINCYTO [Suspect]
     Active Substance: BLINATUMOMAB
     Dosage: 9 MICROGRAM, CONTINUING FOR 24 HOURS INFUSION
     Route: 040
     Dates: start: 20240930, end: 2024
  4. BLINCYTO [Suspect]
     Active Substance: BLINATUMOMAB
     Dosage: 28 MICROGRAM, CONTINUING FOR 24 HOURS INFUSION
     Route: 040
     Dates: start: 20241005

REACTIONS (3)
  - Oxygen saturation decreased [Recovered/Resolved]
  - Chills [Recovered/Resolved]
  - Pyrexia [Recovered/Resolved]

NARRATIVE: CASE EVENT DATE: 20240928
